FAERS Safety Report 9733772 (Version 3)
Quarter: 2014Q1

REPORT INFORMATION
  Report Type: Spontaneous
  Country: DK (occurrence: IT)
  Receive Date: 20131205
  Receipt Date: 20140312
  Transmission Date: 20141002
  Serious: Yes (Hospitalization)
  Sender: FDA-Public Use
  Company Number: IT-FRI-1000051937

PATIENT
  Age: 34 Year
  Sex: Female

DRUGS (3)
  1. ESCITALOPRAM [Suspect]
     Indication: ANXIETY
     Route: 048
     Dates: start: 20130819, end: 20130819
  2. DELORAZEPAM [Suspect]
     Indication: ANXIETY
     Route: 048
     Dates: start: 20130819, end: 20130819
  3. RIBAVIRIN [Concomitant]

REACTIONS (1)
  - Sopor [Unknown]
